FAERS Safety Report 7375965-9 (Version None)
Quarter: 2011Q1

REPORT INFORMATION
  Report Type: 
  Country: None (occurrence: None)
  Receive Date: 20110325
  Receipt Date: 20110317
  Transmission Date: 20110831
  Serious: Yes (Death)
  Sender: FDA-Public Use
  Company Number: US-NAPPMUNDI-USA-2011-0065515

PATIENT
  Sex: Female
  Weight: 54.54 kg

DRUGS (10)
  1. MARINOL                            /00897601/ [Suspect]
     Indication: BACK PAIN
     Dosage: 10 MG, DAILY
     Dates: start: 20100924, end: 20101219
  2. OMEPRAZOLE [Concomitant]
     Indication: PRODUCT USED FOR UNKNOWN INDICATION
  3. SEROQUEL [Concomitant]
     Indication: PRODUCT USED FOR UNKNOWN INDICATION
  4. MARINOL                            /00897601/ [Suspect]
     Indication: FIBROMYALGIA
     Dosage: 5 MG, DAILY
     Dates: start: 20100917, end: 20100923
  5. FENTANYL                           /00174602/ [Suspect]
     Indication: DRUG ABUSE
     Dosage: UNK UNK, DAILY
  6. MARINOL                            /00897601/ [Suspect]
     Dosage: 10 MG, BID
     Dates: start: 20101220
  7. ALBUTEROL [Concomitant]
     Indication: PRODUCT USED FOR UNKNOWN INDICATION
  8. DILAUDID [Suspect]
     Indication: COELIAC DISEASE
     Dosage: UNK UNK, BID
  9. DILAUDID [Suspect]
     Indication: BONE PAIN
  10. DILAUDID [Suspect]
     Indication: OSTEOPOROSIS

REACTIONS (2)
  - DEATH [None]
  - DRUG INTERACTION [None]
